FAERS Safety Report 8088539-1 (Version None)
Quarter: 2012Q1

REPORT INFORMATION
  Report Type: 
  Country: None (occurrence: None)
  Receive Date: 20120128
  Receipt Date: 20110406
  Transmission Date: 20120608
  Serious: Yes (Hospitalization, Other)
  Sender: FDA-Public Use
  Company Number: US-ABBOTT-11P-163-0717393-00

PATIENT
  Sex: Female
  Weight: 106.69 kg

DRUGS (5)
  1. FOLIC ACID [Concomitant]
     Indication: VITAMIN SUPPLEMENTATION
  2. HUMIRA [Suspect]
     Indication: PSORIATIC ARTHROPATHY
     Dates: start: 20100401, end: 20110131
  3. HUMIRA [Suspect]
     Dosage: RE-STARTED
     Dates: start: 20110315
  4. METHOTREXATE [Concomitant]
     Indication: PSORIATIC ARTHROPATHY
  5. VOLTAREN [Concomitant]
     Indication: PAIN

REACTIONS (1)
  - CHOLELITHIASIS [None]
